FAERS Safety Report 21098686 (Version 1)
Quarter: 2022Q3

REPORT INFORMATION
  Report Type: Spontaneous
  Country: US (occurrence: US)
  Receive Date: 20220719
  Receipt Date: 20220719
  Transmission Date: 20221027
  Serious: Yes (Hospitalization, Other)
  Sender: FDA-Public Use
  Company Number: US-BAYER-2022A094989

PATIENT
  Age: 78 Year
  Sex: Male

DRUGS (3)
  1. ASPIRIN [Suspect]
     Active Substance: ASPIRIN
  2. UNSPECIFIED INGREDIENT [Suspect]
     Active Substance: UNSPECIFIED INGREDIENT
  3. HEPARIN [Suspect]
     Active Substance: HEPARIN SODIUM

REACTIONS (10)
  - Ventricular tachycardia [None]
  - Hypotension [None]
  - Shock haemorrhagic [None]
  - Metabolic acidosis [None]
  - Post procedural haemorrhage [None]
  - Haematoma [None]
  - Haemorrhage [None]
  - Arterial haemorrhage [None]
  - Haemoglobin decreased [None]
  - Labelled drug-drug interaction medication error [None]
